FAERS Safety Report 6465798-X (Version None)
Quarter: 2009Q4

REPORT INFORMATION
  Report Type: 
  Country: None (occurrence: None)
  Receive Date: 20091201
  Receipt Date: 20091113
  Transmission Date: 20100525
  Serious: Yes (Other)
  Sender: FDA-Public Use
  Company Number: CA-GENENTECH-282824

PATIENT
  Sex: Female

DRUGS (2)
  1. XOLAIR [Suspect]
     Indication: ASTHMA
     Dosage: 300 MG, 1/MONTH
     Route: 058
     Dates: start: 20080910
  2. XOLAIR [Suspect]
     Dosage: 300 MG, 1/MONTH
     Route: 058
     Dates: start: 20091113

REACTIONS (5)
  - ADENOVIRUS INFECTION [None]
  - CONJUNCTIVITIS [None]
  - NASAL CONGESTION [None]
  - OBSTRUCTIVE AIRWAYS DISORDER [None]
  - SINUS CONGESTION [None]
